FAERS Safety Report 21088246 (Version 1)
Quarter: 2022Q3

REPORT INFORMATION
  Report Type: Spontaneous
  Country: FR (occurrence: FR)
  Receive Date: 20220715
  Receipt Date: 20220715
  Transmission Date: 20221026
  Serious: Yes (Other)
  Sender: FDA-Public Use
  Company Number: None

PATIENT
  Age: 65 Year
  Sex: Female
  Weight: 69 kg

DRUGS (3)
  1. MIRENA [Suspect]
     Active Substance: LEVONORGESTREL
     Indication: Contraception
     Dosage: 20?G/DAY
     Route: 015
     Dates: start: 2002, end: 2005
  2. PROGESTERONE [Suspect]
     Active Substance: PROGESTERONE
     Indication: Product used for unknown indication
  3. UTROGESTAN [Suspect]
     Active Substance: PROGESTERONE
     Indication: Product used for unknown indication
     Dates: start: 2008, end: 2018

REACTIONS (1)
  - Meningioma [Not Recovered/Not Resolved]

NARRATIVE: CASE EVENT DATE: 20210902
